FAERS Safety Report 5579082-X (Version None)
Quarter: 2008Q1

REPORT INFORMATION
  Report Type: 
  Country: None (occurrence: None)
  Receive Date: 20080102
  Receipt Date: 20071221
  Transmission Date: 20080703
  Serious: Yes (Life-Threatening, Hospitalization)
  Sender: FDA-Public Use
  Company Number: FR-ASTRAZENECA-2007SE06801

PATIENT
  Sex: Male

DRUGS (7)
  1. COKENZEN [Suspect]
     Indication: HYPERTENSION
     Route: 048
  2. CORDARONE [Suspect]
     Indication: ATRIAL TACHYCARDIA
     Route: 048
  3. LASILIX [Suspect]
     Indication: DRUG USE FOR UNKNOWN INDICATION
     Route: 048
  4. DETENSIEL [Suspect]
     Indication: DRUG USE FOR UNKNOWN INDICATION
     Route: 048
  5. LIPANTHYL [Suspect]
     Indication: DRUG USE FOR UNKNOWN INDICATION
     Route: 048
  6. PLAVIX [Concomitant]
     Indication: DRUG USE FOR UNKNOWN INDICATION
     Route: 065
  7. ASASANTINE [Concomitant]
     Indication: DRUG USE FOR UNKNOWN INDICATION
     Route: 065

REACTIONS (5)
  - CIRCULATORY COLLAPSE [None]
  - HYPERKALAEMIA [None]
  - PULSE PRESSURE DECREASED [None]
  - RENAL FAILURE [None]
  - RESPIRATORY ARREST [None]
